FAERS Safety Report 19228547 (Version 1)
Quarter: 2021Q2

REPORT INFORMATION
  Report Type: Spontaneous
  Country: US (occurrence: US)
  Receive Date: 20210507
  Receipt Date: 20210507
  Transmission Date: 20210717
  Serious: Yes (Other)
  Sender: FDA-Public Use
  Company Number: US-AUROBINDO-AUR-APL-2021-018505

PATIENT

DRUGS (11)
  1. ALEMTUZUMAB [Suspect]
     Active Substance: ALEMTUZUMAB
     Dosage: 3 MG, DAYS ?22 TO ?19
     Route: 042
  2. MELPHALAN. [Suspect]
     Active Substance: MELPHALAN
     Indication: BONE MARROW CONDITIONING REGIMEN
     Dosage: 140 MILLIGRAM/SQ. METER (DAY ?3)
     Route: 042
  3. ALEMTUZUMAB [Suspect]
     Active Substance: ALEMTUZUMAB
     Dosage: 10 MG, DAYS ?22 TO ?19
     Route: 042
  4. FLUDARABINE [Suspect]
     Active Substance: FLUDARABINE PHOSPHATE
     Indication: BONE MARROW CONDITIONING REGIMEN
     Dosage: 30 MILLIGRAM/SQ. METER
     Route: 048
  5. ALEMTUZUMAB [Suspect]
     Active Substance: ALEMTUZUMAB
     Indication: BONE MARROW CONDITIONING REGIMEN
     Dosage: 20 MG, DAYS ?22 TO ?19
     Route: 042
  6. HYDROXYUREA. [Suspect]
     Active Substance: HYDROXYUREA
     Indication: BONE MARROW CONDITIONING REGIMEN
     Dosage: 30 MILLIGRAM/KILOGRAM (DAYS ?50 TO ?21)
     Route: 048
  7. THIOTEPA. [Suspect]
     Active Substance: THIOTEPA
     Indication: BONE MARROW CONDITIONING REGIMEN
     Dosage: 4 MILLIGRAM/KILOGRAM, TWO TIMES A DAY
     Route: 042
  8. FLUDARABINE [Suspect]
     Active Substance: FLUDARABINE PHOSPHATE
     Dosage: 30 MILLIGRAM/SQ. METER (DAYS ?8 TO ?4)
     Route: 042
  9. MYCOPHENOLATE MOFETIL. [Suspect]
     Active Substance: MYCOPHENOLATE MOFETIL
     Indication: CORD BLOOD TRANSPLANT THERAPY
     Dosage: UNKNOWN
     Route: 065
  10. ALEMTUZUMAB [Suspect]
     Active Substance: ALEMTUZUMAB
     Dosage: 15 MG, DAYS ?22 TO ?19
     Route: 042
  11. MYCOPHENOLATE MOFETIL. [Suspect]
     Active Substance: MYCOPHENOLATE MOFETIL
     Indication: PROPHYLAXIS AGAINST GRAFT VERSUS HOST DISEASE

REACTIONS (3)
  - Pneumonitis [Unknown]
  - Cytomegalovirus infection [Unknown]
  - Transplant rejection [Unknown]
